FAERS Safety Report 18527164 (Version 1)
Quarter: 2020Q4

REPORT INFORMATION
  Report Type: Spontaneous
  Country: GB (occurrence: GB)
  Receive Date: 20201120
  Receipt Date: 20201120
  Transmission Date: 20210114
  Serious: Yes (Other)
  Sender: FDA-Public Use
  Company Number: GB-TEVA-2020-GB-1850682

PATIENT
  Age: 38 Year
  Sex: Female
  Weight: 87.08 kg

DRUGS (7)
  1. TRIMETHOPRIM. [Suspect]
     Active Substance: TRIMETHOPRIM
     Indication: URINARY TRACT INFECTION
     Dosage: 2 DF
     Route: 048
     Dates: start: 20201018, end: 20201025
  2. PROPRANOLOL [Concomitant]
     Active Substance: PROPRANOLOL HYDROCHLORIDE
  3. BUPRENORPHINE. [Concomitant]
     Active Substance: BUPRENORPHINE
  4. SEVREDOL [Concomitant]
     Active Substance: MORPHINE
  5. CYCLIZINE [Concomitant]
     Active Substance: CYCLIZINE
  6. TOPIRAMATE. [Concomitant]
     Active Substance: TOPIRAMATE
  7. ACARBOSE. [Concomitant]
     Active Substance: ACARBOSE

REACTIONS (9)
  - Dry skin [Not Recovered/Not Resolved]
  - Oedema genital [Unknown]
  - Lip injury [Not Recovered/Not Resolved]
  - Genital tract inflammation [Unknown]
  - Dry mouth [Not Recovered/Not Resolved]
  - Rash [Not Recovered/Not Resolved]
  - Balance disorder [Unknown]
  - Dry eye [Not Recovered/Not Resolved]
  - Lip pain [Not Recovered/Not Resolved]

NARRATIVE: CASE EVENT DATE: 20201018
